FAERS Safety Report 22590752 (Version 4)
Quarter: 2023Q4

REPORT INFORMATION
  Report Type: Report from Study
  Country: SG (occurrence: SG)
  Receive Date: 20230612
  Receipt Date: 20231011
  Transmission Date: 20240110
  Serious: Yes (Life-Threatening, Hospitalization)
  Sender: FDA-Public Use
  Company Number: SG-002147023-NVSC2023SG132027

PATIENT
  Age: 64 Year
  Sex: Male
  Weight: 85.8 kg

DRUGS (20)
  1. INCLISIRAN [Suspect]
     Active Substance: INCLISIRAN
     Indication: Cardiovascular disorder
     Dosage: CODE NOT BROKEN
     Route: 058
     Dates: start: 20230301
  2. INVESTIGATIONAL PRODUCT [Suspect]
     Active Substance: INVESTIGATIONAL PRODUCT
     Indication: Cardiovascular disorder
     Dosage: CODE NOT BROKEN
     Route: 058
     Dates: start: 20230301
  3. PLACEBO [Suspect]
     Active Substance: UNSPECIFIED INGREDIENT
     Indication: Cardiovascular disorder
     Dosage: CODE NOT BROKEN
     Route: 058
     Dates: start: 20230301
  4. ASPIRIN [Concomitant]
     Active Substance: ASPIRIN
     Indication: Coronary artery disease
     Dosage: UNK
     Route: 065
     Dates: start: 20111013
  5. METFORMIN HYDROCHLORIDE [Concomitant]
     Active Substance: METFORMIN HYDROCHLORIDE
     Indication: Diabetes mellitus
     Dosage: UNK
     Route: 065
     Dates: start: 20111013
  6. GLUCOSAMINE SULFATE [Concomitant]
     Active Substance: GLUCOSAMINE SULFATE
     Indication: General physical condition
     Dosage: UNK
     Route: 065
     Dates: start: 20141010
  7. BISOPROLOL FUMARATE [Concomitant]
     Active Substance: BISOPROLOL FUMARATE
     Indication: Hypertension
     Dosage: UNK
     Route: 065
     Dates: start: 20160821
  8. OMEPRAZOLE [Concomitant]
     Active Substance: OMEPRAZOLE
     Indication: General physical condition
     Dosage: UNK
     Route: 065
     Dates: start: 20160821
  9. SPIRONOLACTONE [Concomitant]
     Active Substance: SPIRONOLACTONE
     Indication: Cardiovascular event prophylaxis
     Dosage: UNK
     Route: 065
     Dates: start: 20170123
  10. ENTRESTO [Concomitant]
     Active Substance: SACUBITRIL\VALSARTAN
     Indication: Cardiovascular event prophylaxis
     Dosage: UNK
     Route: 065
     Dates: start: 20170810
  11. FUROSEMIDE [Concomitant]
     Active Substance: FUROSEMIDE
     Indication: Cardiovascular event prophylaxis
     Dosage: UNK
     Route: 065
     Dates: start: 20171106
  12. ATORVASTATIN [Concomitant]
     Active Substance: ATORVASTATIN
     Indication: Dyslipidaemia
     Dosage: UNK
     Route: 065
     Dates: start: 20180629
  13. ATORVASTATIN [Concomitant]
     Active Substance: ATORVASTATIN
     Indication: Hyperlipidaemia
  14. DAPAGLIFLOZIN [Concomitant]
     Active Substance: DAPAGLIFLOZIN
     Indication: Diabetes mellitus
     Dosage: UNK
     Route: 065
     Dates: start: 20180629
  15. FENOFIBRATE [Concomitant]
     Active Substance: FENOFIBRATE
     Indication: Dyslipidaemia
     Dosage: UNK
     Route: 065
     Dates: start: 20180629
  16. FENOFIBRATE [Concomitant]
     Active Substance: FENOFIBRATE
     Indication: Hyperlipidaemia
  17. LINAGLIPTIN [Concomitant]
     Active Substance: LINAGLIPTIN
     Indication: Diabetes mellitus
     Dosage: UNK
     Route: 065
     Dates: start: 20200714
  18. EZETIMIBE [Concomitant]
     Active Substance: EZETIMIBE
     Indication: Dyslipidaemia
     Dosage: UNK
     Route: 065
     Dates: start: 20201105
  19. EZETIMIBE [Concomitant]
     Active Substance: EZETIMIBE
     Indication: Hyperlipidaemia
  20. INSULIN ASPART [Concomitant]
     Active Substance: INSULIN ASPART
     Indication: Diabetes mellitus
     Dosage: UNK
     Route: 065
     Dates: start: 20220615

REACTIONS (1)
  - Cerebellar stroke [Not Recovered/Not Resolved]

NARRATIVE: CASE EVENT DATE: 20230606
